FAERS Safety Report 4385640-0 (Version None)
Quarter: 2004Q2

REPORT INFORMATION
  Report Type: 
  Country: None (occurrence: None)
  Receive Date: 20040622
  Receipt Date: 20040610
  Transmission Date: 20050107
  Serious: No
  Sender: FDA-Public Use
  Company Number: 04P-0870263537

PATIENT
  Age: 64 Year
  Sex: Male

DRUGS (2)
  1. VERAPAMIL [Suspect]
     Indication: VENTRICULAR TACHYCARDIA
     Dosage: INTRAVENOUS
     Route: 042
  2. PILSICAINIDE HYDROCHLORIDE [Suspect]
     Indication: ATRIAL FIBRILLATION

REACTIONS (12)
  - ABDOMINAL PAIN [None]
  - ACIDOSIS [None]
  - ATRIAL FIBRILLATION [None]
  - BUNDLE BRANCH BLOCK [None]
  - ELECTROCARDIOGRAM QRS COMPLEX PROLONGED [None]
  - ENTERITIS [None]
  - HYPERHIDROSIS [None]
  - INTESTINAL ISCHAEMIA [None]
  - MELAENA [None]
  - STAPHYLOCOCCAL INFECTION [None]
  - SUPERIOR MESENTERIC ARTERY SYNDROME [None]
  - VENTRICULAR TACHYCARDIA [None]
